FAERS Safety Report 5511522-4 (Version None)
Quarter: 2007Q4

REPORT INFORMATION
  Report Type: 
  Country: None (occurrence: None)
  Receive Date: 20071109
  Receipt Date: 20071030
  Transmission Date: 20080405
  Serious: Yes (Death)
  Sender: FDA-Public Use
  Company Number: B0494387A

PATIENT
  Age: 24 Year
  Sex: Male

DRUGS (9)
  1. ZOFRAN [Suspect]
     Dosage: 8MG TWICE PER DAY
     Route: 042
     Dates: start: 20071001, end: 20071005
  2. CISPLATIN [Suspect]
     Dosage: 38MG PER DAY
     Route: 042
     Dates: start: 20071001, end: 20071005
  3. ETOPOSIDE [Suspect]
     Dosage: 190MG PER DAY
     Route: 042
     Dates: start: 20071001, end: 20071001
  4. BLEOMYCIN [Suspect]
     Dosage: 30MG PER DAY
     Route: 030
     Dates: start: 20071001, end: 20071001
  5. SOLU-MEDROL [Suspect]
     Dosage: 40MG PER DAY
     Route: 042
     Dates: start: 20071001, end: 20071005
  6. HYDROCORTISONE [Suspect]
     Dosage: 100MG PER DAY
     Route: 065
     Dates: start: 20071001, end: 20071001
  7. EMEND [Suspect]
     Route: 048
     Dates: start: 20071001, end: 20071003
  8. PLITICAN [Suspect]
     Route: 042
     Dates: start: 20071001, end: 20071005
  9. CANNABIS [Concomitant]
     Route: 065

REACTIONS (6)
  - CARDIO-RESPIRATORY ARREST [None]
  - CHEST DISCOMFORT [None]
  - CHEST PAIN [None]
  - HYPERHIDROSIS [None]
  - MALAISE [None]
  - VOMITING [None]
